FAERS Safety Report 13510172 (Version 1)
Quarter: 2017Q2

REPORT INFORMATION
  Report Type: Spontaneous
  Country: FR (occurrence: FR)
  Receive Date: 20170503
  Receipt Date: 20170503
  Transmission Date: 20170830
  Serious: Yes (Other)
  Sender: FDA-Public Use
  Company Number: FR-ASTRAZENECA-2017SE44630

PATIENT
  Age: 17977 Day
  Sex: Female

DRUGS (1)
  1. KOMBOGLYZE [Suspect]
     Active Substance: METFORMIN HYDROCHLORIDE\SAXAGLIPTIN
     Indication: TYPE 2 DIABETES MELLITUS
     Route: 048

REACTIONS (1)
  - Hypoglycaemic coma [Recovered/Resolved]

NARRATIVE: CASE EVENT DATE: 20170130
